FAERS Safety Report 25131487 (Version 1)
Quarter: 2025Q1

REPORT INFORMATION
  Report Type: Report from Study
  Country: CA (occurrence: CA)
  Receive Date: 20250327
  Receipt Date: 20250327
  Transmission Date: 20250409
  Serious: Yes (Hospitalization, Other)
  Sender: ABBVIE
  Company Number: CA-ABBVIE-6193154

PATIENT
  Age: 72 Year
  Sex: Male

DRUGS (2)
  1. SKYRIZI [Suspect]
     Active Substance: RISANKIZUMAB-RZAA
     Indication: Crohn^s disease
     Route: 058
     Dates: start: 20241118
  2. SKYRIZI [Suspect]
     Active Substance: RISANKIZUMAB-RZAA
     Route: 058
     Dates: start: 202501

REACTIONS (16)
  - Spinal cord compression [Recovered/Resolved]
  - Back pain [Recovered/Resolved]
  - Spinal fusion surgery [Recovered/Resolved]
  - Post procedural oedema [Unknown]
  - Intervertebral disc protrusion [Unknown]
  - Spinal stenosis [Unknown]
  - Vertebral foraminal stenosis [Unknown]
  - Cerebrospinal fluid retention [Unknown]
  - Post procedural infection [Recovered/Resolved]
  - Staphylococcal infection [Recovered/Resolved]
  - Bacterial infection [Recovered/Resolved]
  - Pain [Unknown]
  - C-reactive protein increased [Unknown]
  - Mobility decreased [Recovered/Resolved]
  - International normalised ratio abnormal [Unknown]
  - Blood sodium abnormal [Unknown]

NARRATIVE: CASE EVENT DATE: 20241101
